FAERS Safety Report 22656057 (Version 1)
Quarter: 2023Q2

REPORT INFORMATION
  Report Type: Spontaneous
  Country: US (occurrence: US)
  Receive Date: 20230629
  Receipt Date: 20230629
  Transmission Date: 20230722
  Serious: Yes (Other)
  Sender: FDA-Public Use
  Company Number: US-PFIZER INC-PV202300114071

PATIENT
  Age: 81 Year
  Sex: Female
  Weight: 90.703 kg

DRUGS (5)
  1. IBRANCE [Suspect]
     Active Substance: PALBOCICLIB
     Indication: Breast cancer female
     Dosage: 100 MG, CYCLIC (1 CAPSULE PO Q DAILY X3 AND 1 WEEK OFF)
     Route: 048
     Dates: start: 20180811, end: 202205
  2. IBRANCE [Suspect]
     Active Substance: PALBOCICLIB
     Indication: Hormone receptor positive breast cancer
     Dosage: 100 MG, CYCLIC (1 CAPSULE PO Q DAILY X3 AND 1 WEEK OFF)
     Route: 048
     Dates: start: 202206
  3. IBRANCE [Suspect]
     Active Substance: PALBOCICLIB
     Indication: Breast cancer stage IV
  4. ARIMIDEX [Suspect]
     Active Substance: ANASTROZOLE
     Dosage: UNK
     Dates: start: 201808, end: 202205
  5. FULVESTRANT [Concomitant]
     Active Substance: FULVESTRANT
     Dosage: UNK, CYCLIC
     Dates: start: 202206

REACTIONS (1)
  - Neutropenia [Unknown]
